FAERS Safety Report 7429778-X (Version None)
Quarter: 2011Q2

REPORT INFORMATION
  Report Type: 
  Country: None (occurrence: None)
  Receive Date: 20110418
  Receipt Date: 20110418
  Transmission Date: 20111010
  Serious: Yes (Other)
  Sender: FDA-Public Use
  Company Number: None

PATIENT
  Age: 55 Year
  Sex: Female
  Weight: 61.2356 kg

DRUGS (1)
  1. CIPROFLOXACIN [Suspect]
     Indication: DISCOGRAM
     Dosage: 12 TABS ONE TAB EVERY 12HR PO
     Route: 048
     Dates: start: 20080806, end: 20080808

REACTIONS (2)
  - ARTHRALGIA [None]
  - TENDON PAIN [None]
